FAERS Safety Report 5104219-6 (Version None)
Quarter: 2006Q3

REPORT INFORMATION
  Report Type: 
  Country: None (occurrence: None)
  Receive Date: 20060911
  Receipt Date: 20060824
  Transmission Date: 20061208
  Serious: Yes (Hospitalization)
  Sender: FDA-Public Use
  Company Number: 2006-BP-09943RO

PATIENT
  Age: 71 Year
  Sex: Female

DRUGS (3)
  1. METHOTREXATE [Suspect]
     Indication: RHEUMATOID ARTHRITIS
     Dosage: SEE TEXT 8 MG, 1 IN 1 WK)
     Dates: start: 19890101, end: 20040731
  2. METHOTREXATE [Suspect]
     Indication: RHEUMATOID ARTHRITIS
     Dosage: SEE TEXT 8 MG, 1 IN 1 WK)
     Dates: start: 19990101, end: 20040731
  3. PREDNISOLONE [Suspect]
     Indication: RHEUMATOID ARTHRITIS
     Dosage: 2 MG DAILY
     Dates: start: 19990101

REACTIONS (11)
  - ASPIRATION BONE MARROW ABNORMAL [None]
  - BLOOD LACTATE DEHYDROGENASE INCREASED [None]
  - CREPITATIONS [None]
  - EPSTEIN-BARR VIRUS INFECTION [None]
  - HIP FRACTURE [None]
  - INFECTIOUS MONONUCLEOSIS [None]
  - LYMPHADENOPATHY [None]
  - LYMPHOCYTOSIS [None]
  - LYMPHOPROLIFERATIVE DISORDER [None]
  - PANCYTOPENIA [None]
  - PLEURAL EFFUSION [None]
